FAERS Safety Report 7301940-6 (Version None)
Quarter: 2011Q1

REPORT INFORMATION
  Report Type: 
  Country: None (occurrence: None)
  Receive Date: 20110218
  Receipt Date: 20110207
  Transmission Date: 20110831
  Serious: Yes (Other)
  Sender: FDA-Public Use
  Company Number: JP-ROCHE-758948

PATIENT
  Age: 7 Year
  Sex: Male
  Weight: 26 kg

DRUGS (2)
  1. ACETAMINOPHEN [Concomitant]
     Dosage: DOSAGE UNCERTAIN
  2. TAMIFLU [Suspect]
     Indication: INFLUENZA
     Route: 048
     Dates: start: 20100201, end: 20100202

REACTIONS (1)
  - ABNORMAL BEHAVIOUR [None]
